FAERS Safety Report 4893253-7 (Version None)
Quarter: 2006Q1

REPORT INFORMATION
  Report Type: 
  Country: None (occurrence: None)
  Receive Date: 20060127
  Receipt Date: 20060118
  Transmission Date: 20060701
  Serious: Yes (Hospitalization, Other)
  Sender: FDA-Public Use
  Company Number: US-JNJFOC-20060103568

PATIENT
  Sex: Male
  Weight: 138.8 kg

DRUGS (8)
  1. REMICADE [Suspect]
     Route: 050
  2. SYNTHROID [Concomitant]
  3. HYDROCHLOROTHIAZIDE [Concomitant]
  4. FLAGYL [Concomitant]
  5. ENTOCORT [Concomitant]
  6. NIFEDIPINE [Concomitant]
  7. LEXAPRO [Concomitant]
  8. TRAZODONE HCL [Concomitant]

REACTIONS (3)
  - ELECTROLYTE IMBALANCE [None]
  - HYPOTENSION [None]
  - URTICARIA [None]
